FAERS Safety Report 21135642 (Version 1)
Quarter: 2022Q3

REPORT INFORMATION
  Report Type: Spontaneous
  Country: US (occurrence: US)
  Receive Date: 20220727
  Receipt Date: 20220727
  Transmission Date: 20221027
  Serious: No
  Sender: FDA-Public Use
  Company Number: US-Accord-256642

PATIENT
  Age: 84 Year
  Sex: Female
  Weight: 62.14 kg

DRUGS (2)
  1. LETROZOLE [Suspect]
     Active Substance: LETROZOLE
     Indication: Breast cancer
     Dosage: ONCE A DAY
     Route: 048
     Dates: start: 2019
  2. VITAMINS NOS [Concomitant]
     Active Substance: VITAMINS
     Dosage: DAILY

REACTIONS (2)
  - Blood cholesterol increased [Unknown]
  - Osteopenia [Unknown]

NARRATIVE: CASE EVENT DATE: 20190101
